FAERS Safety Report 14992845 (Version 3)
Quarter: 2018Q2

REPORT INFORMATION
  Report Type: Report from Study
  Country: US (occurrence: US)
  Receive Date: 20180609
  Receipt Date: 20180627
  Transmission Date: 20180711
  Serious: No
  Sender: FDA-Public Use
  Company Number: PHEH2018US021922

PATIENT
  Sex: Female

DRUGS (3)
  1. RUBRACA [Concomitant]
     Active Substance: RUCAPARIB CAMSYLATE
     Indication: PRODUCT USED FOR UNKNOWN INDICATION
     Route: 065
  2. EXEMESTANE. [Concomitant]
     Active Substance: EXEMESTANE
     Indication: PRODUCT USED FOR UNKNOWN INDICATION
     Route: 065
  3. AFINITOR [Suspect]
     Active Substance: EVEROLIMUS
     Indication: FALLOPIAN TUBE CANCER
     Dosage: 25 MG, QD (10 MG)
     Route: 048
     Dates: start: 20180521, end: 20180613

REACTIONS (8)
  - Epistaxis [Unknown]
  - Cough [Unknown]
  - Fatigue [Unknown]
  - Platelet count decreased [Unknown]
  - Diarrhoea [Unknown]
  - Product use in unapproved indication [Unknown]
  - White blood cell count increased [Unknown]
  - Constipation [Unknown]
